FAERS Safety Report 10735794 (Version 1)
Quarter: 2015Q1

REPORT INFORMATION
  Report Type: Spontaneous
  Country: US (occurrence: None)
  Receive Date: 20150122
  Receipt Date: 20150122
  Transmission Date: 20150721
  Serious: Yes (Life-Threatening, Disabling)
  Sender: FDA-Public Use
  Company Number: None

PATIENT
  Sex: Female
  Weight: 65.32 kg

DRUGS (2)
  1. MYCOPHENOLATE 500 MG TEVA USA [Suspect]
     Active Substance: MYCOPHENOLATE MOFETIL
     Indication: PROPHYLAXIS
     Route: 048
     Dates: start: 20130517, end: 20130905
  2. MYCOPHENOLATE 500 MG TEVA USA [Suspect]
     Active Substance: MYCOPHENOLATE MOFETIL
     Indication: RENAL DISORDER
     Route: 048
     Dates: start: 20130517, end: 20130905

REACTIONS (1)
  - Breast cancer [None]
